FAERS Safety Report 7119802-6 (Version None)
Quarter: 2010Q4

REPORT INFORMATION
  Report Type: 
  Country: None (occurrence: None)
  Receive Date: 20101123
  Receipt Date: 20100923
  Transmission Date: 20110411
  Serious: No
  Sender: FDA-Public Use
  Company Number: US-BRISTOL-MYERS SQUIBB COMPANY-15254204

PATIENT
  Age: 60 Year
  Sex: Male

DRUGS (3)
  1. ONGLYZA [Suspect]
     Dates: start: 20100801
  2. TOPROL-XL [Concomitant]
  3. CRESTOR [Concomitant]

REACTIONS (1)
  - DRUG INEFFECTIVE [None]
